FAERS Safety Report 8083754-5 (Version None)
Quarter: 2012Q1

REPORT INFORMATION
  Report Type: 
  Country: None (occurrence: None)
  Receive Date: 20120127
  Receipt Date: 20110124
  Transmission Date: 20120608
  Serious: No
  Sender: FDA-Public Use
  Company Number: US-ABBOTT-11P-163-0700198-00

PATIENT
  Age: 54 Year
  Sex: Female

DRUGS (4)
  1. HYDROXYZINE HCL [Concomitant]
     Indication: PRURITUS
     Dosage: 1-3 EVERY 4-6 HOURS
  2. ANAPROXYN [Concomitant]
     Indication: PRODUCT USED FOR UNKNOWN INDICATION
     Dosage: 1 TAB 3 TIMES A DAY
     Route: 048
  3. HUMIRA [Suspect]
     Indication: PSORIASIS
     Dates: start: 20110107
  4. SIMVASTATIN [Concomitant]
     Indication: BLOOD CHOLESTEROL

REACTIONS (1)
  - DIZZINESS [None]
